FAERS Safety Report 6244372-4 (Version None)
Quarter: 2009Q2

REPORT INFORMATION
  Report Type: 
  Country: None (occurrence: None)
  Receive Date: 20090625
  Receipt Date: 20090612
  Transmission Date: 20091009
  Serious: Yes (Other)
  Sender: FDA-Public Use
  Company Number: PHHY2009FR23472

PATIENT
  Age: 67 Year
  Sex: Female

DRUGS (1)
  1. FEMARA [Suspect]
     Dosage: 1 DF/DAY

REACTIONS (8)
  - BLOOD CHOLESTEROL INCREASED [None]
  - BURNING SENSATION [None]
  - CARTILAGE INJURY [None]
  - GAIT DISTURBANCE [None]
  - HAIR GROWTH ABNORMAL [None]
  - JOINT EFFUSION [None]
  - JOINT SWELLING [None]
  - VISUAL ACUITY REDUCED [None]
